FAERS Safety Report 11368549 (Version 2)
Quarter: 2015Q4

REPORT INFORMATION
  Report Type: Spontaneous
  Country: FR (occurrence: None)
  Receive Date: 20150810
  Receipt Date: 20151013
  Transmission Date: 20160304
  Serious: Yes (Death, Congenital Anomaly, Other)
  Sender: FDA-Public Use
  Company Number: 2015FR0441

PATIENT

DRUGS (1)
  1. KINERET [Suspect]
     Active Substance: ANAKINRA

REACTIONS (3)
  - Congenital central nervous system anomaly [None]
  - Abortion induced [None]
  - Exposure via father [None]
